FAERS Safety Report 14432385 (Version 1)
Quarter: 2018Q1

REPORT INFORMATION
  Report Type: Spontaneous
  Country: BE (occurrence: BE)
  Receive Date: 20180124
  Receipt Date: 20180124
  Transmission Date: 20180509
  Serious: Yes (Other)
  Sender: FDA-Public Use
  Company Number: PHHY2016BE185998

PATIENT
  Age: 82 Year
  Sex: Male
  Weight: 73.4 kg

DRUGS (16)
  1. OXALIPLATIN. [Suspect]
     Active Substance: OXALIPLATIN
     Indication: COLORECTAL CANCER METASTATIC
     Dosage: 1 OT, UNK
     Route: 065
     Dates: start: 20160229
  2. FLUOROURACIL. [Suspect]
     Active Substance: FLUOROURACIL
     Dosage: 1 G, UNK (3 CYCLES)
     Route: 040
     Dates: start: 20151116
  3. AVASTIN [Suspect]
     Active Substance: BEVACIZUMAB
     Indication: COLORECTAL CANCER METASTATIC
     Dosage: 1 OT, UNK (17 CYCLES)
     Route: 042
     Dates: start: 20140319
  4. AVASTIN [Suspect]
     Active Substance: BEVACIZUMAB
     Dosage: 1 OT, UNK
     Route: 042
     Dates: start: 20160711
  5. IRINOTECAN [Concomitant]
     Active Substance: IRINOTECAN
     Indication: COLORECTAL CANCER METASTATIC
     Dosage: 1 OT, UNK
     Route: 065
     Dates: start: 20140319
  6. BROMAZEPAM [Concomitant]
     Active Substance: BROMAZEPAM
     Indication: PRODUCT USED FOR UNKNOWN INDICATION
     Dosage: 6 MG, UNK
     Route: 048
     Dates: start: 20160418
  7. FOLINIC ACID [Suspect]
     Active Substance: LEUCOVORIN
     Dosage: 1 UNK, UNK
     Route: 040
     Dates: start: 20160229
  8. FOLINIC ACID [Suspect]
     Active Substance: LEUCOVORIN
     Dosage: 1 OT, UNK (3 CYCLES)
     Route: 040
     Dates: start: 20151116
  9. IRINOTECAN [Concomitant]
     Active Substance: IRINOTECAN
     Dosage: 1 UNK, UNK
     Route: 065
     Dates: start: 20151116
  10. AMLODIPINE EG [Concomitant]
     Active Substance: AMLODIPINE BESYLATE
     Indication: PRODUCT USED FOR UNKNOWN INDICATION
     Dosage: 5 MG, UNK
     Route: 048
     Dates: start: 20140910
  11. AVASTIN [Suspect]
     Active Substance: BEVACIZUMAB
     Dosage: 1 OT, UNK
     Route: 042
     Dates: start: 20160229
  12. VORINA [Concomitant]
     Indication: PRODUCT USED FOR UNKNOWN INDICATION
     Dosage: 315 MG, UNK
     Route: 042
  13. FLUOROURACIL. [Suspect]
     Active Substance: FLUOROURACIL
     Indication: COLORECTAL CANCER METASTATIC
     Dosage: 1 G, UNK (3 CYCLES)
     Route: 040
     Dates: start: 20140319
  14. FLUOROURACIL. [Suspect]
     Active Substance: FLUOROURACIL
     Dosage: 1 G, UNK
     Route: 040
     Dates: start: 20160229
  15. AVASTIN [Suspect]
     Active Substance: BEVACIZUMAB
     Dosage: 1 OT, UNK (17 CYCLES)
     Route: 042
     Dates: start: 20151116
  16. FOLINIC ACID [Suspect]
     Active Substance: LEUCOVORIN
     Indication: COLORECTAL CANCER METASTATIC
     Dosage: 1 OT, UNK (3 CYCLES)
     Route: 040
     Dates: start: 20140319

REACTIONS (7)
  - Nasopharyngitis [Recovered/Resolved]
  - Musculoskeletal stiffness [Recovered/Resolved]
  - Polyneuropathy [Not Recovered/Not Resolved]
  - Upper respiratory tract infection [Recovered/Resolved]
  - Leukopenia [Recovered/Resolved]
  - Thrombocytopenia [Not Recovered/Not Resolved]
  - Neutropenia [Recovered/Resolved]

NARRATIVE: CASE EVENT DATE: 20150805
